FAERS Safety Report 16749820 (Version 2)
Quarter: 2019Q4

REPORT INFORMATION
  Report Type: Report from Study
  Country: CA (occurrence: CA)
  Receive Date: 20190828
  Receipt Date: 20191025
  Transmission Date: 20200122
  Serious: Yes (Other)
  Sender: FDA-Public Use
  Company Number: PHHY2019CA141904

PATIENT
  Age: 61 Year
  Sex: Male

DRUGS (2)
  1. REVOLADE [Suspect]
     Active Substance: ELTROMBOPAG
     Dosage: 50 MG, QD
     Route: 048
     Dates: start: 20190519
  2. REVOLADE [Suspect]
     Active Substance: ELTROMBOPAG
     Indication: HEPATITIS C
     Dosage: 50 MG, UNK
     Route: 048
     Dates: start: 20190501

REACTIONS (36)
  - Gait disturbance [Unknown]
  - Abdominal distension [Unknown]
  - Mental disorder [Unknown]
  - Mean cell volume decreased [Unknown]
  - Neutrophil count decreased [Unknown]
  - Back pain [Unknown]
  - Spinal pain [Recovering/Resolving]
  - Serum ferritin decreased [Unknown]
  - Pancytopenia [Unknown]
  - Diarrhoea [Unknown]
  - Renal pain [Unknown]
  - Hypoaesthesia [Unknown]
  - Lymphocyte count decreased [Unknown]
  - Monocyte count decreased [Unknown]
  - Gingival bleeding [Recovered/Resolved]
  - Platelet morphology abnormal [Unknown]
  - Laziness [Unknown]
  - Gingival pain [Unknown]
  - Insomnia [Unknown]
  - Fatigue [Recovering/Resolving]
  - Toothache [Unknown]
  - Therapeutic response decreased [Unknown]
  - Haemoglobin decreased [Unknown]
  - Haematocrit decreased [Unknown]
  - Mean cell haemoglobin decreased [Unknown]
  - Red cell distribution width increased [Unknown]
  - Platelet count decreased [Unknown]
  - Weight increased [Unknown]
  - Dysuria [Unknown]
  - Mean cell haemoglobin concentration decreased [Unknown]
  - Red blood cell morphology abnormal [Unknown]
  - Joint range of motion decreased [Unknown]
  - Concomitant disease aggravated [Unknown]
  - Asthenia [Unknown]
  - Blood iron decreased [Unknown]
  - Microcytic anaemia [Unknown]

NARRATIVE: CASE EVENT DATE: 2019
